FAERS Safety Report 5627661-3 (Version None)
Quarter: 2008Q1

REPORT INFORMATION
  Report Type: 
  Country: None (occurrence: None)
  Receive Date: 20080215
  Receipt Date: 20080213
  Transmission Date: 20080703
  Serious: Yes (Other)
  Sender: FDA-Public Use
  Company Number: DE-GENENTECH-254495

PATIENT
  Sex: Female

DRUGS (3)
  1. HERCEPTIN [Suspect]
     Indication: BREAST CANCER METASTATIC
     Dosage: 2 MG/KG, 1/WEEK
     Route: 065
  2. HERCEPTIN [Suspect]
     Dosage: 6 MG/KG, Q3W
     Route: 065
  3. VINORELBINE [Concomitant]
     Indication: BREAST CANCER METASTATIC

REACTIONS (3)
  - DRUG EXPOSURE DURING PREGNANCY [None]
  - OLIGOHYDRAMNIOS [None]
  - VAGINAL HAEMORRHAGE [None]
